FAERS Safety Report 17287623 (Version 3)
Quarter: 2020Q1

REPORT INFORMATION
  Report Type: Spontaneous
  Country: FR (occurrence: FR)
  Receive Date: 20200120
  Receipt Date: 20200321
  Transmission Date: 20200409
  Serious: Yes (Hospitalization)
  Sender: FDA-Public Use
  Company Number: FR-TEVA-2020-FR-1169121

PATIENT
  Age: 57 Year
  Sex: Female
  Weight: 66 kg

DRUGS (2)
  1. MITOMYCIN MEDAC [Suspect]
     Active Substance: MITOMYCIN
     Indication: ANAL CANCER
     Dosage: 15 MG
     Route: 042
     Dates: start: 20191202, end: 20191202
  2. FLUOROURACILE [Suspect]
     Active Substance: FLUOROURACIL
     Indication: ANAL CANCER
     Dosage: 1604 MG PER DAY
     Route: 042
     Dates: start: 20191202, end: 20191206

REACTIONS (5)
  - Thrombocytopenia [Recovered/Resolved]
  - Abdominal pain [Recovered/Resolved]
  - Diarrhoea [Recovered/Resolved]
  - Dehydration [Recovered/Resolved]
  - Product preparation error [Recovered/Resolved]

NARRATIVE: CASE EVENT DATE: 20191216
